FAERS Safety Report 12843293 (Version 1)
Quarter: 2016Q4

REPORT INFORMATION
  Report Type: Spontaneous
  Country: BR (occurrence: BR)
  Receive Date: 20161013
  Receipt Date: 20161013
  Transmission Date: 20170207
  Serious: Yes (Other)
  Sender: FDA-Public Use
  Company Number: ALCN2016BR006883

PATIENT
  Sex: Male

DRUGS (2)
  1. VIGADEXA [Suspect]
     Active Substance: DEXAMETHASONE SODIUM PHOSPHATE\MOXIFLOXACIN HYDROCHLORIDE
     Indication: PRODUCT USED FOR UNKNOWN INDICATION
     Dosage: 1 GTT, UNK
     Route: 047
     Dates: start: 20161005
  2. VIGADEXA [Suspect]
     Active Substance: DEXAMETHASONE SODIUM PHOSPHATE\MOXIFLOXACIN HYDROCHLORIDE
     Dosage: 1 GTT, UNK
     Route: 047
     Dates: start: 20161006

REACTIONS (1)
  - Hiccups [Unknown]
